FAERS Safety Report 4797132-5 (Version None)
Quarter: 2005Q4

REPORT INFORMATION
  Report Type: 
  Country: None (occurrence: None)
  Receive Date: 20051013
  Receipt Date: 20031222
  Transmission Date: 20060501
  Serious: Yes (Disabling)
  Sender: FDA-Public Use
  Company Number: US-ROCHE-354748

PATIENT
  Age: 44 Year
  Sex: Male
  Weight: 72.6 kg

DRUGS (2)
  1. LARIAM [Suspect]
     Indication: MALARIA PROPHYLAXIS
     Dosage: 23 TABLETS DISPENSED.
     Route: 048
     Dates: start: 20021115, end: 20030512
  2. SUDAFED 12 HOUR [Concomitant]
     Indication: RESPIRATORY DISORDER
     Dates: start: 20030415

REACTIONS (74)
  - ABNORMAL BEHAVIOUR [None]
  - ABNORMAL DREAMS [None]
  - AGGRESSION [None]
  - ALCOHOL POISONING [None]
  - AMNESIA [None]
  - ANGER [None]
  - ANOREXIA [None]
  - ANXIETY [None]
  - ASTHENIA [None]
  - ATRIAL FIBRILLATION [None]
  - ATTENTION DEFICIT/HYPERACTIVITY DISORDER [None]
  - BALANCE DISORDER [None]
  - BIPOLAR DISORDER [None]
  - COGNITIVE DISORDER [None]
  - CONDUCTION DISORDER [None]
  - CONFUSIONAL STATE [None]
  - COUGH [None]
  - CRANIAL NEUROPATHY [None]
  - DEHYDRATION [None]
  - DEPRESSED LEVEL OF CONSCIOUSNESS [None]
  - DEPRESSION [None]
  - DIARRHOEA [None]
  - DISTURBANCE IN ATTENTION [None]
  - DIZZINESS [None]
  - DRUG TOXICITY [None]
  - DYSARTHRIA [None]
  - DYSPHEMIA [None]
  - ENDOLYMPHATIC HYDROPS [None]
  - FATIGUE [None]
  - FEELING ABNORMAL [None]
  - GAIT DISTURBANCE [None]
  - GENERAL SYMPTOM [None]
  - GILBERT'S SYNDROME [None]
  - HALLUCINATION [None]
  - HEPATIC FAILURE [None]
  - HOMICIDAL IDEATION [None]
  - HYPERACUSIS [None]
  - HYPOAESTHESIA [None]
  - INCONTINENCE [None]
  - INSOMNIA [None]
  - IRRITABILITY [None]
  - JAUNDICE [None]
  - JAW DISORDER [None]
  - LACRIMATION INCREASED [None]
  - MANIA [None]
  - MEMORY IMPAIRMENT [None]
  - MIGRAINE [None]
  - MOOD SWINGS [None]
  - MOTOR DYSFUNCTION [None]
  - MUSCLE TWITCHING [None]
  - NAUSEA [None]
  - NECK PAIN [None]
  - OBSESSIVE THOUGHTS [None]
  - PAIN IN EXTREMITY [None]
  - PANIC ATTACK [None]
  - PARANOIA [None]
  - PHOTOPHOBIA [None]
  - PHOTOSENSITIVITY REACTION [None]
  - POST-TRAUMATIC STRESS DISORDER [None]
  - PSYCHOMOTOR HYPERACTIVITY [None]
  - ROAD TRAFFIC ACCIDENT [None]
  - SELF-INJURIOUS IDEATION [None]
  - SLEEP DISORDER [None]
  - STRESS [None]
  - SUICIDAL IDEATION [None]
  - SYNCOPE [None]
  - TARDIVE DYSKINESIA [None]
  - THIRST [None]
  - TINNITUS [None]
  - TREMOR [None]
  - VESTIBULAR DISORDER [None]
  - VISUAL DISTURBANCE [None]
  - VISUAL FIELD DEFECT [None]
  - VOMITING [None]
